FAERS Safety Report 14510837 (Version 1)
Quarter: 2018Q1

REPORT INFORMATION
  Report Type: Spontaneous
  Country: FR (occurrence: FR)
  Receive Date: 20180209
  Receipt Date: 20180209
  Transmission Date: 20180509
  Serious: Yes (Other)
  Sender: FDA-Public Use
  Company Number: FR-ABBVIE-18P-056-2250203-00

PATIENT
  Age: 70 Year
  Sex: Female

DRUGS (1)
  1. DEPAKINE [Suspect]
     Active Substance: VALPROATE SODIUM
     Indication: PRODUCT USED FOR UNKNOWN INDICATION
     Dosage: 100 MG IN THE MORNING, 100 MG IN THE AFTERNOON AND 400 MG IN THE EVENING.
     Route: 065
     Dates: start: 201706, end: 201708

REACTIONS (14)
  - Arthralgia [Unknown]
  - Onychoclasis [Unknown]
  - Headache [Unknown]
  - Rash [Unknown]
  - Therapy cessation [Unknown]
  - Abdominal pain upper [Unknown]
  - Epistaxis [Unknown]
  - Disturbance in attention [Unknown]
  - Urinary incontinence [Unknown]
  - Stomatitis [Unknown]
  - Femoral neck fracture [Unknown]
  - Pyrexia [Unknown]
  - Diarrhoea [Unknown]
  - Nausea [Unknown]

NARRATIVE: CASE EVENT DATE: 2017
